FAERS Safety Report 7421082-9 (Version None)
Quarter: 2011Q2

REPORT INFORMATION
  Report Type: 
  Country: None (occurrence: None)
  Receive Date: 20110418
  Receipt Date: 20110411
  Transmission Date: 20111010
  Serious: Yes (Other)
  Sender: FDA-Public Use
  Company Number: US-BAYER-2011-032742

PATIENT
  Sex: Female

DRUGS (2)
  1. YAZ [Suspect]
  2. OCELLA [Suspect]

REACTIONS (1)
  - CHOLECYSTECTOMY [None]
